FAERS Safety Report 10263045 (Version 2)
Quarter: 2014Q2

REPORT INFORMATION
  Report Type: Report from Study
  Country: US (occurrence: US)
  Receive Date: 20140626
  Receipt Date: 20140626
  Transmission Date: 20141212
  Serious: Yes (Death)
  Sender: FDA-Public Use
  Company Number: US-MYLANLABS-2013S1028253

PATIENT
  Age: 54 Year
  Sex: Female

DRUGS (10)
  1. CLOZAPINE TABLETS [Suspect]
     Route: 048
     Dates: start: 201309
  2. DIVALPROEX [Concomitant]
     Dosage: DELAYED RELEASE
  3. ESCITALOPRAM [Concomitant]
  4. GEMFIBROZIL [Concomitant]
  5. AMLODIPINE [Concomitant]
  6. BENZTROPINE [Concomitant]
  7. LORATADINE [Concomitant]
  8. LORAZEPAM [Concomitant]
  9. NABUMETONE [Concomitant]
  10. OLANZAPINE [Concomitant]

REACTIONS (1)
  - Pneumonia [Fatal]
